FAERS Safety Report 4564261-0 (Version None)
Quarter: 2005Q1

REPORT INFORMATION
  Report Type: 
  Country: None (occurrence: None)
  Receive Date: 20050128
  Receipt Date: 20040913
  Transmission Date: 20050727
  Serious: No
  Sender: FDA-Public Use
  Company Number: US-GLAXOSMITHKLINE-A0525432A

PATIENT
  Age: 30 Year
  Sex: Male

DRUGS (3)
  1. COMBIVIR [Suspect]
     Indication: HIV INFECTION
     Dosage: 1TAB TWICE PER DAY
     Route: 048
     Dates: start: 20040910
  2. CEPHALEXIN [Concomitant]
  3. SUSTIVA [Concomitant]

REACTIONS (2)
  - FATIGUE [None]
  - LOCAL SWELLING [None]
